FAERS Safety Report 5688333-2 (Version None)
Quarter: 2008Q1

REPORT INFORMATION
  Report Type: 
  Country: None (occurrence: None)
  Receive Date: 20080328
  Receipt Date: 20080328
  Transmission Date: 20080703
  Serious: Yes (Life-Threatening, Hospitalization)
  Sender: FDA-Public Use
  Company Number: None

PATIENT
  Age: 59 Year
  Sex: Male
  Weight: 59 kg

DRUGS (3)
  1. LISINOPRIL AND HYDROCHLOROTHIAZIDE [Suspect]
     Indication: HYPERTENSION
     Dosage: 20/25 MG DAILY PO
     Route: 048
     Dates: start: 20080314, end: 20080323
  2. ZANTAC [Concomitant]
  3. NITROGLYCERIN [Concomitant]

REACTIONS (2)
  - ANGIOEDEMA [None]
  - SPEECH DISORDER [None]
